FAERS Safety Report 21360049 (Version 1)
Quarter: 2022Q3

REPORT INFORMATION
  Report Type: Spontaneous
  Country: US (occurrence: None)
  Receive Date: 20220921
  Receipt Date: 20220921
  Transmission Date: 20221027
  Serious: Yes (Other)
  Sender: FDA-Public Use
  Company Number: None

PATIENT
  Age: 46 Year
  Sex: Female

DRUGS (6)
  1. HUMIRA [Suspect]
     Active Substance: ADALIMUMAB
     Indication: Crohn^s disease
     Dosage: FREQUENCY : EVERY OTHER WEEK;?
     Route: 058
     Dates: start: 20220609
  2. PREDNISONE [Concomitant]
     Active Substance: PREDNISONE
  3. Mercaptopurine (6-MP) 50mg Tablets [Concomitant]
     Dates: start: 20220609
  4. OMEPRAZOLE [Concomitant]
     Active Substance: OMEPRAZOLE
     Dates: start: 20220609
  5. Tylenol 8 Hr 650mg Tablet [Concomitant]
     Dates: start: 20220609
  6. Zoloft 100mg Tablet [Concomitant]
     Dates: start: 20220609

REACTIONS (4)
  - Condition aggravated [None]
  - Abdominal pain [None]
  - Abdominal distension [None]
  - Haematochezia [None]

NARRATIVE: CASE EVENT DATE: 20220706
